FAERS Safety Report 9579943 (Version 1)
Quarter: 2013Q3

REPORT INFORMATION
  Report Type: Spontaneous
  Country: US (occurrence: None)
  Receive Date: 20130930
  Receipt Date: 20130930
  Transmission Date: 20140515
  Serious: Yes (Other)
  Sender: FDA-Public Use
  Company Number: None

PATIENT
  Age: 4 Year
  Sex: Female
  Weight: 15.88 kg

DRUGS (2)
  1. BADGER KIDS SPF 30 SUNSCREEN [Suspect]
     Indication: SUNBURN
     Dates: start: 20130703, end: 20130906
  2. BADGER KIDS SPF 30 SUNSCREEN [Suspect]
     Indication: PROPHYLAXIS
     Dates: start: 20130703, end: 20130906

REACTIONS (2)
  - Urinary tract infection [None]
  - Product quality issue [None]
